FAERS Safety Report 10528661 (Version 1)
Quarter: 2014Q4

REPORT INFORMATION
  Report Type: Spontaneous
  Country: US (occurrence: None)
  Receive Date: 20141016
  Receipt Date: 20141016
  Transmission Date: 20150528
  Serious: Yes (Hospitalization)
  Sender: FDA-Public Use
  Company Number: None

PATIENT
  Age: 66 Year
  Sex: Male
  Weight: 109.1 kg

DRUGS (1)
  1. SULFAMETHOXAZOLE/TRIMETHOPRIM [Suspect]
     Active Substance: SULFAMETHOXAZOLE\TRIMETHOPRIM
     Indication: UPPER RESPIRATORY TRACT INFECTION
     Route: 048
     Dates: start: 20141001, end: 20141010

REACTIONS (11)
  - Rash generalised [None]
  - Oropharyngeal pain [None]
  - Fatigue [None]
  - Diarrhoea [None]
  - Constipation [None]
  - Cough [None]
  - Headache [None]
  - Pruritus [None]
  - Chills [None]
  - Ear pain [None]
  - Nausea [None]

NARRATIVE: CASE EVENT DATE: 20141010
